FAERS Safety Report 24158031 (Version 1)
Quarter: 2024Q3

REPORT INFORMATION
  Report Type: Spontaneous
  Country: NL (occurrence: None)
  Receive Date: 20240731
  Receipt Date: 20240731
  Transmission Date: 20241016
  Serious: Yes (Disabling, Other)
  Sender: ASTRAZENECA
  Company Number: 2024A173656

PATIENT
  Age: 52 Year
  Sex: Female
  Weight: 95 kg

DRUGS (2)
  1. QUETIAPINE [Suspect]
     Active Substance: QUETIAPINE
     Indication: Sleep disorder therapy
     Dosage: 3 - EVERY HOUR
     Dates: start: 20110201, end: 20240229
  2. LITHIUM CARBONATE [Concomitant]
     Active Substance: LITHIUM CARBONATE

REACTIONS (3)
  - Weight increased [Recovering/Resolving]
  - Type 2 diabetes mellitus [Recovering/Resolving]
  - Off label use [Recovered/Resolved]

NARRATIVE: CASE EVENT DATE: 20110201
